FAERS Safety Report 20006989 (Version 3)
Quarter: 2022Q1

REPORT INFORMATION
  Report Type: Spontaneous
  Country: JP (occurrence: JP)
  Receive Date: 20211028
  Receipt Date: 20220207
  Transmission Date: 20220424
  Serious: Yes (Hospitalization, Other)
  Sender: FDA-Public Use
  Company Number: JP-MTPC-MTPC2021-0025747

PATIENT
  Age: 33 Year
  Sex: Male

DRUGS (21)
  1. REMICADE [Suspect]
     Active Substance: INFLIXIMAB
     Indication: Crohn^s disease
     Dosage: 400 MILLIGRAM, QD
     Route: 042
     Dates: start: 20150526, end: 20151113
  2. REMICADE [Suspect]
     Active Substance: INFLIXIMAB
     Dosage: 800 MILLIGRAM, QD
     Route: 042
     Dates: start: 20160108, end: 20180706
  3. REMICADE [Suspect]
     Active Substance: INFLIXIMAB
     Dosage: 400 MILLIGRAM, QD
     Route: 042
     Dates: start: 20180907, end: 20210805
  4. REMICADE [Suspect]
     Active Substance: INFLIXIMAB
     Dosage: 400 MILLIGRAM, QD
     Route: 042
     Dates: start: 20210902, end: 20210902
  5. IMURAN [Suspect]
     Active Substance: AZATHIOPRINE
     Indication: Product used for unknown indication
     Dosage: 25 MILLIGRAM, QD
     Route: 048
     Dates: start: 20160603, end: 20160623
  6. IMURAN [Suspect]
     Active Substance: AZATHIOPRINE
     Dosage: 50 MILLIGRAM, QD
     Route: 048
     Dates: start: 20160624, end: 20211001
  7. PENTASA [Concomitant]
     Active Substance: MESALAMINE
     Dosage: 3000 MILLIGRAM, TID
     Route: 048
     Dates: start: 20150520
  8. AMINO ACIDS\CARBOHYDRATES\MINERALS\SOYBEAN OIL\VITAMINS [Concomitant]
     Active Substance: AMINO ACIDS\CARBOHYDRATES\MINERALS\SOYBEAN OIL\VITAMINS
     Dosage: 80 GRAM, QD
     Route: 048
     Dates: start: 20150520, end: 20150721
  9. AMINO ACIDS\CARBOHYDRATES\MINERALS\SOYBEAN OIL\VITAMINS [Concomitant]
     Active Substance: AMINO ACIDS\CARBOHYDRATES\MINERALS\SOYBEAN OIL\VITAMINS
     Dosage: 80 GRAM, QD
     Route: 048
     Dates: start: 20170724, end: 20170807
  10. AMINO ACIDS\CARBOHYDRATES\MINERALS\SOYBEAN OIL\VITAMINS [Concomitant]
     Active Substance: AMINO ACIDS\CARBOHYDRATES\MINERALS\SOYBEAN OIL\VITAMINS
     Dosage: 80 GRAM, QD
     Route: 048
     Dates: start: 20210408, end: 20210611
  11. CIPROFLOXACIN [Concomitant]
     Active Substance: CIPROFLOXACIN
     Dosage: 4 DOSAGE FORM, BID
     Route: 048
     Dates: start: 20150706, end: 20150829
  12. FLAGYL [Concomitant]
     Active Substance: METRONIDAZOLE\METRONIDAZOLE HYDROCHLORIDE
     Dosage: 750 MILLIGRAM, TID
     Dates: start: 20150706, end: 20150728
  13. CALONAL [Concomitant]
     Active Substance: ACETAMINOPHEN
     Dosage: 800 MILLIGRAM, BID
     Route: 048
     Dates: start: 20151106, end: 20151112
  14. FAMOTIDINE [Concomitant]
     Active Substance: FAMOTIDINE
     Dosage: 20 MILLIGRAM, BID
     Route: 048
     Dates: start: 20151106, end: 20151112
  15. TALION [Concomitant]
     Dosage: 20 MILLIGRAM, BID
     Dates: start: 20151106, end: 20151112
  16. HERBALS [Concomitant]
     Active Substance: HERBALS
     Dosage: 7.5 GRAM, TID
     Route: 048
     Dates: start: 20151113, end: 20151209
  17. HERBALS [Concomitant]
     Active Substance: HERBALS
     Dosage: 15 GRAM, TID
     Route: 048
     Dates: start: 20151210
  18. BIO-THREE [Concomitant]
     Active Substance: HERBALS
     Dosage: 3 DOSAGE FORM, TID
     Route: 048
     Dates: start: 20151113, end: 20211124
  19. SODIUM FERROUS CITRATE [Concomitant]
     Active Substance: SODIUM FERROUS CITRATE
     Dosage: 50 MILLIGRAM, QD
     Route: 048
     Dates: start: 20170724, end: 20170821
  20. SODIUM FERROUS CITRATE [Concomitant]
     Active Substance: SODIUM FERROUS CITRATE
     Dosage: 50 MILLIGRAM, QD
     Route: 048
     Dates: start: 20190905, end: 20191108
  21. STELARA [Concomitant]
     Active Substance: USTEKINUMAB
     Dosage: 390 MILLIGRAM, Q4WEEKS
     Route: 041
     Dates: start: 20211028

REACTIONS (2)
  - Disseminated varicella zoster virus infection [Recovering/Resolving]
  - Hepatitis acute [Recovering/Resolving]

NARRATIVE: CASE EVENT DATE: 20210927
